FAERS Safety Report 25768800 (Version 1)
Quarter: 2025Q3

REPORT INFORMATION
  Report Type: Spontaneous
  Country: US (occurrence: None)
  Receive Date: 20250905
  Receipt Date: 20250905
  Transmission Date: 20251021
  Serious: No
  Sender: FDA-CTU
  Company Number: None

PATIENT
  Age: 26 Year
  Sex: Female

DRUGS (12)
  1. ADDERALL XR [Suspect]
     Active Substance: AMPHETAMINE ASPARTATE\AMPHETAMINE SULFATE\DEXTROAMPHETAMINE SACCHARATE\DEXTROAMPHETAMINE SULFATE
     Indication: Attention deficit hyperactivity disorder
     Route: 048
  2. CETIRIZINE [Concomitant]
     Active Substance: CETIRIZINE HYDROCHLORIDE
  3. DRISOUREBIBE EE 3/0.3 [Concomitant]
  4. QULIPTA [Concomitant]
     Active Substance: ATOGEPANT
  5. TRAZODONE 25 MG [Concomitant]
  6. DOCUSATE SODIUM [Concomitant]
     Active Substance: DOCUSATE SODIUM
  7. OMEPRAZOLE [Concomitant]
     Active Substance: OMEPRAZOLE
  8. GUANFACINE [Concomitant]
     Active Substance: GUANFACINE
  9. FERROUS GLUCONATE 324 MG (37.5 MG IRON) [Concomitant]
  10. I-THEANINE 200MG [Concomitant]
  11. MAGNESIUM GLYCINATE 480MG [Concomitant]
  12. VITAMIN D3 25 MCG (1,000 UNIT) [Concomitant]

REACTIONS (10)
  - Drug ineffective [None]
  - Therapy change [None]
  - Anxiety [None]
  - Restlessness [None]
  - Feeling jittery [None]
  - Palpitations [None]
  - Chest pain [None]
  - Hypersomnia [None]
  - Sensitive skin [None]
  - Decreased activity [None]

NARRATIVE: CASE EVENT DATE: 20250610
